FAERS Safety Report 4876619-0 (Version None)
Quarter: 2006Q1

REPORT INFORMATION
  Report Type: 
  Country: None (occurrence: None)
  Receive Date: 20060109
  Receipt Date: 20060109
  Transmission Date: 20060701
  Serious: Yes (Hospitalization)
  Sender: FDA-Public Use
  Company Number: None

PATIENT
  Age: 67 Year
  Sex: Male
  Weight: 81.64 kg

DRUGS (2)
  1. VELCADE [Suspect]
     Indication: BRAIN NEOPLASM
     Dosage: 1.4 MG 9 DOSES IV
     Route: 042
     Dates: start: 20051107, end: 20051219
  2. TEMOZOLOMIDE 75MG/M2 [Suspect]
     Dosage: 150MG ONCE  A DAY PO
     Route: 048
     Dates: start: 20051107, end: 20051220

REACTIONS (6)
  - ASTHENIA [None]
  - DISEASE PROGRESSION [None]
  - DISEASE RECURRENCE [None]
  - GAIT DISTURBANCE [None]
  - LETHARGY [None]
  - MENTAL STATUS CHANGES [None]
